FAERS Safety Report 21724861 (Version 1)
Quarter: 2022Q4

REPORT INFORMATION
  Report Type: Spontaneous
  Country: US (occurrence: US)
  Receive Date: 20221214
  Receipt Date: 20221214
  Transmission Date: 20230113
  Serious: Yes (Other)
  Sender: FDA-Public Use
  Company Number: US-GLENMARK PHARMACEUTICALS-2022GMK075975

PATIENT

DRUGS (2)
  1. ZONISAMIDE [Suspect]
     Active Substance: ZONISAMIDE
     Indication: Seizure
     Dosage: UNK
     Route: 065
     Dates: end: 201910
  2. ZONISAMIDE [Suspect]
     Active Substance: ZONISAMIDE
     Dosage: UNK (DOSE INCREASE)
     Route: 065
     Dates: start: 201910

REACTIONS (2)
  - Seizure [Unknown]
  - Recalled product administered [Unknown]

NARRATIVE: CASE EVENT DATE: 20191010
